FAERS Safety Report 7929729-5 (Version None)
Quarter: 2011Q4

REPORT INFORMATION
  Report Type: 
  Country: None (occurrence: None)
  Receive Date: 20111108
  Receipt Date: 20110317
  Transmission Date: 20120403
  Serious: Yes (Other)
  Sender: FDA-Public Use
  Company Number: PHHY2011US22087

PATIENT
  Age: 55 Year
  Sex: Female

DRUGS (3)
  1. ZOMETA [Suspect]
     Indication: MULTIPLE MYELOMA
  2. REVLIMID [Suspect]
     Indication: MULTIPLE MYELOMA
     Dosage: 25 MG, ORAL
     Route: 048
     Dates: start: 20070701, end: 20090301
  3. DECADRON [Concomitant]

REACTIONS (5)
  - OSTEONECROSIS OF JAW [None]
  - DIARRHOEA [None]
  - NAUSEA [None]
  - VOMITING [None]
  - GINGIVAL DISORDER [None]
